FAERS Safety Report 10213856 (Version 1)
Quarter: 2014Q2

REPORT INFORMATION
  Report Type: Spontaneous
  Country: IT (occurrence: IT)
  Receive Date: 20140603
  Receipt Date: 20140603
  Transmission Date: 20141212
  Serious: Yes (Hospitalization)
  Sender: FDA-Public Use
  Company Number: IT-MYLANLABS-2014S1012278

PATIENT
  Age: 88 Year
  Sex: Female

DRUGS (7)
  1. LORAZEPAM [Suspect]
     Indication: ANXIOLYTIC THERAPY
     Dosage: 20 GTT DAILY
     Route: 048
     Dates: start: 20140401, end: 20140402
  2. CITALOPRAM [Suspect]
     Indication: ANTIDEPRESSANT THERAPY
     Dosage: 20 MG DAILY
     Route: 048
     Dates: end: 20140402
  3. LYRICA [Concomitant]
     Indication: PRODUCT USED FOR UNKNOWN INDICATION
     Route: 048
     Dates: end: 20140402
  4. LANOXIN [Concomitant]
     Indication: PRODUCT USED FOR UNKNOWN INDICATION
     Route: 048
  5. CARDIOASPIRIN [Concomitant]
     Indication: PRODUCT USED FOR UNKNOWN INDICATION
     Route: 048
  6. TAREG [Concomitant]
     Indication: PRODUCT USED FOR UNKNOWN INDICATION
     Route: 048
  7. LANSOPRAZOLE [Concomitant]
     Indication: PRODUCT USED FOR UNKNOWN INDICATION
     Route: 048

REACTIONS (3)
  - Disorientation [Recovered/Resolved]
  - Overdose [Recovered/Resolved]
  - Sopor [Recovered/Resolved]
